FAERS Safety Report 8847115 (Version 1)
Quarter: 2012Q4

REPORT INFORMATION
  Report Type: Spontaneous
  Country: US (occurrence: None)
  Receive Date: 20121017
  Receipt Date: 20121017
  Transmission Date: 20130627
  Serious: No
  Sender: FDA-Public Use
  Company Number: None

PATIENT
  Age: 63 Year
  Sex: Male
  Weight: 90.2 kg

DRUGS (1)
  1. PIPERACILLIN / TAZOBACTAM [Suspect]
     Indication: INFECTION MRSA
     Route: 042
     Dates: start: 20120911, end: 20120911

REACTIONS (1)
  - Nephritis [None]
